APPROVED DRUG PRODUCT: FORTAMET
Active Ingredient: METFORMIN HYDROCHLORIDE
Strength: 1GM
Dosage Form/Route: TABLET, EXTENDED RELEASE;ORAL
Application: N021574 | Product #002
Applicant: ANDRX LABS LLC
Approved: Apr 27, 2004 | RLD: Yes | RS: No | Type: DISCN